FAERS Safety Report 9162061 (Version 2)
Quarter: 2013Q1

REPORT INFORMATION
  Report Type: Spontaneous
  Country: US (occurrence: None)
  Receive Date: 20130118
  Receipt Date: 20130122
  Transmission Date: 20140127
  Serious: Yes (Hospitalization)
  Sender: FDA-Public Use
  Company Number: 2012034243

PATIENT
  Age: 19 Month
  Sex: Male
  Weight: 12.4 kg

DRUGS (3)
  1. PRIVIGEN (IMMUNE GLOBULIN INTRAVENOUS (HUMAN) 10% LIQUID) [Suspect]
     Indication: KAWASAKI^S DISEASE
     Dosage: (TOTAL VOLUME 500 ML)
     Route: 042
     Dates: start: 20121202, end: 20121202
  2. ACETAMINOPHEN (PARACETAMOL) [Concomitant]
  3. BENADRYL (DIPHENHYDRAMINE HYDROCHLORIDE) [Concomitant]

REACTIONS (1)
  - Pyrexia [None]
